FAERS Safety Report 25146820 (Version 1)
Quarter: 2025Q2

REPORT INFORMATION
  Report Type: Spontaneous
  Country: GB (occurrence: GB)
  Receive Date: 20250401
  Receipt Date: 20250401
  Transmission Date: 20250716
  Serious: Yes (Other)
  Sender: TEVA
  Company Number: None

PATIENT
  Sex: Female

DRUGS (2)
  1. FLUTICASONE [Suspect]
     Active Substance: FLUTICASONE
     Indication: Product used for unknown indication
     Route: 065
  2. AZELASTINE [Suspect]
     Active Substance: AZELASTINE
     Indication: Product used for unknown indication
     Route: 065

REACTIONS (3)
  - Illness [Recovering/Resolving]
  - Taste disorder [Not Recovered/Not Resolved]
  - Dysgeusia [Not Recovered/Not Resolved]
